FAERS Safety Report 6538101-4 (Version None)
Quarter: 2010Q1

REPORT INFORMATION
  Report Type: 
  Country: None (occurrence: None)
  Receive Date: 20100110
  Receipt Date: 20091228
  Transmission Date: 20100710
  Serious: Yes (Other)
  Sender: FDA-Public Use
  Company Number: 2009-5240

PATIENT
  Age: 15 Year
  Sex: Male

DRUGS (5)
  1. INCRELEX [Suspect]
     Indication: CONGENITAL OSTEODYSTROPHY
     Dosage: SEE IMAGE
     Route: 058
     Dates: start: 20091019, end: 20091025
  2. INCRELEX [Suspect]
     Indication: CONGENITAL OSTEODYSTROPHY
     Dosage: SEE IMAGE
     Route: 058
     Dates: start: 20091026, end: 20091101
  3. INCRELEX [Suspect]
     Indication: CONGENITAL OSTEODYSTROPHY
     Dosage: SEE IMAGE
     Route: 058
     Dates: start: 20091102, end: 20091120
  4. CORTICOTHERAPY (CORTICOSTEROIDS) [Concomitant]
  5. VENTOLIN [Concomitant]

REACTIONS (5)
  - DYSPNOEA [None]
  - EYELID OEDEMA [None]
  - INJECTION SITE PRURITUS [None]
  - LIP OEDEMA [None]
  - URTICARIA [None]
